FAERS Safety Report 6595947-4 (Version None)
Quarter: 2010Q1

REPORT INFORMATION
  Report Type: 
  Country: None (occurrence: None)
  Receive Date: 20100223
  Receipt Date: 20100209
  Transmission Date: 20100710
  Serious: Yes (Other)
  Sender: FDA-Public Use
  Company Number: PHHY2010US07387

PATIENT
  Sex: Female

DRUGS (4)
  1. TEKTURNA [Suspect]
     Dosage: 300 MG, UNK
     Dates: start: 20091101, end: 20091228
  2. ATENOLOL [Concomitant]
     Dosage: 50 MG, UNK
  3. HYDROCHLOROTHIAZIDE [Concomitant]
     Dosage: 12.5 MG, UNK
  4. ALPRAZOLAM [Concomitant]
     Dosage: 0.25 MG, UNK

REACTIONS (6)
  - ERYTHEMA [None]
  - EYE IRRITATION [None]
  - HYPERSENSITIVITY [None]
  - PHARYNGEAL OEDEMA [None]
  - RASH [None]
  - RASH PRURITIC [None]
